FAERS Safety Report 15348243 (Version 11)
Quarter: 2022Q3

REPORT INFORMATION
  Report Type: Spontaneous
  Country: US (occurrence: US)
  Receive Date: 20180904
  Receipt Date: 20220822
  Transmission Date: 20221026
  Serious: Yes (Death, Other)
  Sender: FDA-Public Use
  Company Number: US-GLAXOSMITHKLINE-US2018GSK159249

PATIENT
  Age: 67 Year
  Sex: Female
  Weight: 63 kg

DRUGS (4)
  1. PREVACID 24 HR [Suspect]
     Active Substance: LANSOPRAZOLE
     Indication: Gastrooesophageal reflux disease
     Dosage: 15 MG, UNK
     Route: 048
  2. PREVACID [Suspect]
     Active Substance: LANSOPRAZOLE
     Indication: Product used for unknown indication
     Dosage: UNK
     Route: 065
  3. ESOMEPRAZOLE [Suspect]
     Active Substance: ESOMEPRAZOLE
     Indication: Gastrooesophageal reflux disease
     Dosage: 40 MG, UNK
     Route: 065
  4. PANTOPRAZOLE [Suspect]
     Active Substance: PANTOPRAZOLE
     Indication: Gastrooesophageal reflux disease
     Dosage: 40 MG, BID
     Route: 048

REACTIONS (22)
  - Neuroendocrine carcinoma [Fatal]
  - Metastases to liver [Fatal]
  - Metastases to bone [Fatal]
  - Chronic kidney disease [Unknown]
  - Kidney infection [Unknown]
  - Renal failure [Unknown]
  - Renal impairment [Unknown]
  - Renal injury [Unknown]
  - Acute kidney injury [Unknown]
  - Pollakiuria [Unknown]
  - Proteinuria [Unknown]
  - Oliguria [Unknown]
  - Polyuria [Unknown]
  - Urge incontinence [Unknown]
  - Dysuria [Unknown]
  - Micturition urgency [Unknown]
  - Haematuria [Unknown]
  - Incontinence [Unknown]
  - Nocturia [Unknown]
  - Urinary incontinence [Unknown]
  - Creatinine urine abnormal [Unknown]
  - Interstitial lung disease [Unknown]

NARRATIVE: CASE EVENT DATE: 20151116
